FAERS Safety Report 16049914 (Version 1)
Quarter: 2019Q1

REPORT INFORMATION
  Report Type: Spontaneous
  Country: US (occurrence: US)
  Receive Date: 20190308
  Receipt Date: 20190308
  Transmission Date: 20190418
  Serious: No
  Sender: FDA-Public Use
  Company Number: US-009507513-1903USA002048

PATIENT
  Sex: Female

DRUGS (1)
  1. BELSOMRA [Suspect]
     Active Substance: SUVOREXANT
     Indication: SLEEP DISORDER
     Dosage: 1 DOSAGE FORM, QD(ONE 10MG TABLET, NIGHTLY, BEFORE BED)
     Route: 048
     Dates: end: 201903

REACTIONS (1)
  - Drug ineffective [Unknown]
